FAERS Safety Report 10617253 (Version 1)
Quarter: 2014Q4

REPORT INFORMATION
  Report Type: Spontaneous
  Country: GR (occurrence: GR)
  Receive Date: 20141201
  Receipt Date: 20141201
  Transmission Date: 20150529
  Serious: Yes (Other)
  Sender: FDA-Public Use
  Company Number: GR-GLAXOSMITHKLINE-GR2014GSK026370

PATIENT
  Age: 40 Year
  Sex: Male

DRUGS (3)
  1. ARZERRA [Suspect]
     Active Substance: OFATUMUMAB
     Indication: CHRONIC LYMPHOCYTIC LEUKAEMIA REFRACTORY
     Dosage: 300 MG, SINGLE
     Dates: start: 20140923, end: 20140923
  2. ARZERRA [Suspect]
     Active Substance: OFATUMUMAB
     Dosage: UNK
  3. ARZERRA [Suspect]
     Active Substance: OFATUMUMAB
     Dosage: 2000 MG, WE
     Dates: start: 20141007, end: 20141029

REACTIONS (2)
  - Haemolytic anaemia [Unknown]
  - No therapeutic response [Unknown]

NARRATIVE: CASE EVENT DATE: 20140930
